FAERS Safety Report 7514791-4 (Version None)
Quarter: 2011Q2

REPORT INFORMATION
  Report Type: 
  Country: None (occurrence: None)
  Receive Date: 20110422
  Receipt Date: 20100521
  Transmission Date: 20111010
  Serious: Yes (Other)
  Sender: FDA-Public Use
  Company Number: WAES 1005USA03700

PATIENT
  Age: 16 Year
  Sex: Female

DRUGS (1)
  1. SINGULAIR [Suspect]
     Indication: ALLERGY PROPHYLAXIS
     Dosage: 1X/PO
     Route: 048

REACTIONS (1)
  - CONVULSION [None]
